FAERS Safety Report 6593278-X (Version None)
Quarter: 2010Q1

REPORT INFORMATION
  Report Type: 
  Country: None (occurrence: None)
  Receive Date: 20100218
  Receipt Date: 20100218
  Transmission Date: 20100710
  Serious: No
  Sender: FDA-Public Use
  Company Number: None

PATIENT
  Sex: Female
  Weight: 85.2762 kg

DRUGS (1)
  1. METFORMIN HCL [Suspect]
     Indication: DIABETES MELLITUS
     Dosage: 1000 MG 1 PILL 2X DAILY ORAL
     Route: 048
     Dates: start: 20100130

REACTIONS (2)
  - GASTRIC DISORDER [None]
  - PRODUCT QUALITY ISSUE [None]
